FAERS Safety Report 25555025 (Version 1)
Quarter: 2025Q3

REPORT INFORMATION
  Report Type: Spontaneous
  Country: TW (occurrence: TW)
  Receive Date: 20250715
  Receipt Date: 20250715
  Transmission Date: 20251021
  Serious: Yes (Hospitalization, Other)
  Sender: ADVANZ PHARMA
  Company Number: TW-SA-2025SA195122

PATIENT

DRUGS (1)
  1. HYDROXYCHLOROQUINE SULFATE [Suspect]
     Active Substance: HYDROXYCHLOROQUINE SULFATE
     Indication: Immune system disorder
     Route: 048
     Dates: start: 20250306, end: 20250407

REACTIONS (5)
  - Cushing^s syndrome [Unknown]
  - Acute generalised exanthematous pustulosis [Recovering/Resolving]
  - Pain [Recovering/Resolving]
  - Pustule [Recovering/Resolving]
  - Rash erythematous [Recovering/Resolving]

NARRATIVE: CASE EVENT DATE: 20250101
